FAERS Safety Report 6103604-3 (Version None)
Quarter: 2009Q1

REPORT INFORMATION
  Report Type: 
  Country: None (occurrence: None)
  Receive Date: 20090302
  Receipt Date: 20090217
  Transmission Date: 20090719
  Serious: Yes (Life-Threatening)
  Sender: FDA-Public Use
  Company Number: PI-02922

PATIENT
  Age: 64 Year
  Sex: Male

DRUGS (3)
  1. CHLORAPREP [Suspect]
     Indication: PREOPERATIVE CARE
  2. LIDOCANE [Concomitant]
  3. IV RADIO CONTRAST DYE [Concomitant]

REACTIONS (6)
  - BLOOD PRESSURE DECREASED [None]
  - DIARRHOEA [None]
  - FLUSHING [None]
  - LIP SWELLING [None]
  - PRURITUS [None]
  - SWOLLEN TONGUE [None]
